FAERS Safety Report 10610889 (Version 6)
Quarter: 2015Q4

REPORT INFORMATION
  Report Type: Spontaneous
  Country: US (occurrence: US)
  Receive Date: 20141126
  Receipt Date: 20151019
  Transmission Date: 20160304
  Serious: No
  Sender: FDA-Public Use
  Company Number: US-GLAXOSMITHKLINE-A1078896A

PATIENT
  Age: 33 Year
  Sex: Female

DRUGS (4)
  1. VENTOLIN HFA [Suspect]
     Active Substance: ALBUTEROL SULFATE
     Indication: WHEEZING
     Dosage: 1-2 PUFFS EVERY FOUR HOURS AS NEEDED.
     Route: 055
     Dates: start: 20120820
  2. VENTOLIN HFA [Suspect]
     Active Substance: ALBUTEROL SULFATE
     Indication: ASTHMA
  3. FLOVENT [Suspect]
     Active Substance: FLUTICASONE PROPIONATE
     Indication: ASTHMA
     Dosage: 44 MCG. UNKNOWN DOSING.
     Route: 055
     Dates: start: 20120820
  4. VENTOLIN HFA [Suspect]
     Active Substance: ALBUTEROL SULFATE
     Indication: DYSPNOEA
     Dosage: UNK

REACTIONS (9)
  - Ovarian cyst [Unknown]
  - Asthma [Unknown]
  - Malaise [Unknown]
  - Nasopharyngitis [Unknown]
  - Inappropriate schedule of drug administration [None]
  - Emergency care examination [Recovered/Resolved]
  - Therapy cessation [Unknown]
  - Irritability [None]
  - Dyspnoea [Unknown]

NARRATIVE: CASE EVENT DATE: 20140618
